FAERS Safety Report 12081190 (Version 2)
Quarter: 2016Q1

REPORT INFORMATION
  Report Type: Spontaneous
  Country: GB (occurrence: GB)
  Receive Date: 20160216
  Receipt Date: 20160217
  Transmission Date: 20160526
  Serious: Yes (Other)
  Sender: FDA-Public Use
  Company Number: GB-TEVA-632638ACC

PATIENT
  Age: 41 Year
  Sex: Female

DRUGS (3)
  1. COCODAMOL [Concomitant]
     Active Substance: ACETAMINOPHEN\CODEINE PHOSPHATE
  2. DOXYCYCLINE HYDROCHLORIDE [Suspect]
     Active Substance: DOXYCYCLINE HYDROCHLORIDE
     Indication: LOWER RESPIRATORY TRACT INFECTION
     Route: 048
     Dates: end: 20160107
  3. AMITRIPTYLIN [Concomitant]
     Active Substance: AMITRIPTYLINE

REACTIONS (4)
  - Paraesthesia [Unknown]
  - Stress [Unknown]
  - Anxiety [Unknown]
  - Discomfort [Unknown]

NARRATIVE: CASE EVENT DATE: 20160110
